FAERS Safety Report 8872466 (Version 2)
Quarter: 2013Q2

REPORT INFORMATION
  Report Type: Report from Study
  Country: CA (occurrence: CA)
  Receive Date: 20121030
  Receipt Date: 20130529
  Transmission Date: 20140414
  Serious: Yes (Other)
  Sender: FDA-Public Use
  Company Number: CA-UCBSA-069700

PATIENT
  Age: 38 Year
  Sex: Female
  Weight: 81 kg

DRUGS (14)
  1. CIMZIA [Suspect]
     Indication: RHEUMATOID ARTHRITIS
     Route: 058
     Dates: start: 20111224, end: 20121006
  2. CIMZIA [Suspect]
     Indication: RHEUMATOID ARTHRITIS
     Route: 058
     Dates: start: 20111112, end: 20111210
  3. METHOTREXATE [Concomitant]
     Indication: RHEUMATOID ARTHRITIS
     Route: 048
     Dates: start: 2008
  4. CELEXA [Concomitant]
     Indication: DEPRESSION
     Route: 048
  5. BREVICON [Concomitant]
     Indication: CONTRACEPTION
     Route: 048
  6. ZANTAC [Concomitant]
     Indication: DYSPEPSIA
     Route: 048
  7. OMEGA 3 [Concomitant]
     Indication: SUPPLEMENTATION THERAPY
     Route: 048
  8. VITAMIN C [Concomitant]
     Indication: VITAMIN SUPPLEMENTATION
  9. VITAMIN D [Concomitant]
     Indication: VITAMIN SUPPLEMENTATION
     Route: 048
  10. FOLIC ACID [Concomitant]
     Indication: VITAMIN SUPPLEMENTATION
     Route: 048
  11. LYRICA [Concomitant]
     Indication: PAIN
     Route: 048
     Dates: end: 201210
  12. PERCOCET [Concomitant]
     Indication: PAIN
     Route: 048
     Dates: end: 201210
  13. OXYCODONE [Concomitant]
     Indication: PAIN
     Route: 048
  14. OXYCODONE [Concomitant]
     Indication: PAIN
     Route: 048
     Dates: start: 201210

REACTIONS (4)
  - Liver function test abnormal [Recovered/Resolved]
  - C-reactive protein increased [Recovered/Resolved]
  - Pain [Recovered/Resolved]
  - Infection [Unknown]
